FAERS Safety Report 8328811-0 (Version None)
Quarter: 2012Q2

REPORT INFORMATION
  Report Type: 
  Country: None (occurrence: None)
  Receive Date: 20120502
  Receipt Date: 20100902
  Transmission Date: 20120825
  Serious: No
  Sender: FDA-Public Use
  Company Number: US-TEVA-2010004710

PATIENT
  Age: 54 Year
  Sex: Male

DRUGS (1)
  1. NUVIGIL [Suspect]
     Route: 048
     Dates: start: 20100823

REACTIONS (3)
  - RASH [None]
  - SKIN CHAPPED [None]
  - OEDEMA PERIPHERAL [None]
